FAERS Safety Report 10149883 (Version 3)
Quarter: 2014Q2

REPORT INFORMATION
  Report Type: Spontaneous
  Country: DE (occurrence: DE)
  Receive Date: 20140502
  Receipt Date: 20140527
  Transmission Date: 20141212
  Serious: Yes (Other)
  Sender: FDA-Public Use
  Company Number: DE-JNJFOC-20140419685

PATIENT
  Age: 62 Year
  Sex: Female

DRUGS (19)
  1. XARELTO [Suspect]
     Indication: PRODUCT USED FOR UNKNOWN INDICATION
     Route: 048
  2. XARELTO [Suspect]
     Indication: PRODUCT USED FOR UNKNOWN INDICATION
     Route: 048
     Dates: start: 201403
  3. ALDACTONE [Concomitant]
     Route: 065
  4. BISOPROLOL [Concomitant]
     Route: 065
  5. RAMIPRIL [Concomitant]
     Route: 065
  6. CARMEN [Concomitant]
     Route: 065
  7. L-THYROXIN [Concomitant]
     Route: 065
  8. TILIDIN [Concomitant]
     Route: 065
  9. DIGIMERK [Concomitant]
     Route: 065
  10. PASPERTIN [Concomitant]
     Route: 065
  11. CALCIUM SANDOZ [Concomitant]
     Route: 065
  12. ACC LONG [Concomitant]
     Route: 065
  13. MOVICOL [Concomitant]
     Route: 065
  14. KALINOR (POTASSIUM BICARBONATE, POTASSIUM CITRATE) [Concomitant]
     Route: 065
  15. TOREM [Concomitant]
     Dosage: 1-1/ 2-0
     Route: 065
  16. XIPAMID [Concomitant]
     Route: 065
     Dates: end: 20140430
  17. MARCUMAR [Concomitant]
     Route: 065
  18. MARCUMAR [Concomitant]
     Dosage: 0-0-1/2
     Route: 065
     Dates: start: 20140430, end: 20140430
  19. MARCUMAR [Concomitant]
     Dosage: 0-0-1/4
     Route: 065
     Dates: start: 20140501, end: 20140501

REACTIONS (1)
  - Pulmonary embolism [Recovering/Resolving]
